FAERS Safety Report 5468721-X (Version None)
Quarter: 2007Q3

REPORT INFORMATION
  Report Type: 
  Country: None (occurrence: None)
  Receive Date: 20070926
  Receipt Date: 20070914
  Transmission Date: 20080115
  Serious: Yes (Other)
  Sender: FDA-Public Use
  Company Number: SE-ELI_LILLY_AND_COMPANY-SE200708006291

PATIENT
  Age: 74 Year
  Sex: Male

DRUGS (3)
  1. CYMBALTA [Suspect]
     Indication: DEPRESSION
     Dosage: UNK, UNKNOWN
     Route: 065
     Dates: start: 20070716
  2. LYRICA [Concomitant]
     Dosage: UNK, UNKNOWN
     Route: 065
     Dates: start: 20070601
  3. LYRICA [Concomitant]
     Dosage: 150 MG, 2/D
     Route: 065
     Dates: start: 20070101

REACTIONS (4)
  - DIARRHOEA HAEMORRHAGIC [None]
  - GASTROINTESTINAL HAEMORRHAGE [None]
  - HAEMORRHOIDS [None]
  - RECTAL ULCER [None]
